FAERS Safety Report 9392230 (Version 3)
Quarter: 2013Q4

REPORT INFORMATION
  Report Type: Spontaneous
  Country: JP (occurrence: JP)
  Receive Date: 20130710
  Receipt Date: 20131105
  Transmission Date: 20140711
  Serious: Yes (Hospitalization, Other)
  Sender: FDA-Public Use
  Company Number: JP-ROCHE-1218039

PATIENT
  Age: 59 Year
  Sex: Female
  Weight: 50 kg

DRUGS (10)
  1. AVASTIN [Suspect]
     Indication: BREAST CANCER
     Route: 041
     Dates: start: 20130111, end: 20130111
  2. AVASTIN [Suspect]
     Indication: BREAST CANCER METASTATIC
     Dosage: DAY1,15
     Route: 041
     Dates: start: 20130208, end: 20130222
  3. AVASTIN [Suspect]
     Indication: BREAST CANCER METASTATIC
     Dosage: DAY1,15
     Route: 041
     Dates: start: 20130308, end: 20130322
  4. AVASTIN [Suspect]
     Indication: BREAST CANCER METASTATIC
     Route: 041
     Dates: start: 20130405, end: 20130405
  5. DOXORUBICIN HYDROCHLORIDE [Suspect]
     Indication: BREAST CANCER METASTATIC
     Dosage: DOSAGE IS UNCERTAIN.
     Route: 042
     Dates: start: 20120813, end: 20130217
  6. ENDOXAN [Concomitant]
     Indication: BREAST CANCER METASTATIC
     Dosage: DOSAGE IS UNCERTAIN.
     Route: 042
     Dates: start: 20120813, end: 20121217
  7. PACLITAXEL [Concomitant]
     Indication: BREAST CANCER METASTATIC
     Route: 041
     Dates: start: 20130111, end: 20130118
  8. PACLITAXEL [Concomitant]
     Indication: BREAST CANCER METASTATIC
     Dosage: DAY1,8,15
     Route: 041
     Dates: start: 20130208, end: 20130222
  9. PACLITAXEL [Concomitant]
     Indication: BREAST CANCER METASTATIC
     Dosage: DAY1,8,15
     Route: 041
     Dates: start: 20130308, end: 20130322
  10. PACLITAXEL [Concomitant]
     Indication: BREAST CANCER METASTATIC
     Dosage: DAY1,8
     Route: 041
     Dates: start: 20130405, end: 20130412

REACTIONS (5)
  - Cardiac failure congestive [Recovering/Resolving]
  - Arterial thrombosis [Recovering/Resolving]
  - Dyspnoea [Recovered/Resolved with Sequelae]
  - Pleurisy [Not Recovered/Not Resolved]
  - Neutropenia [Recovered/Resolved]
